FAERS Safety Report 13744614 (Version 1)
Quarter: 2017Q3

REPORT INFORMATION
  Report Type: Spontaneous
  Country: US (occurrence: US)
  Receive Date: 20170712
  Receipt Date: 20170712
  Transmission Date: 20171127
  Serious: No
  Sender: FDA-Public Use
  Company Number: US-009507513-1706USA010420

PATIENT
  Sex: Female
  Weight: 94.8 kg

DRUGS (1)
  1. IMPLANON [Suspect]
     Active Substance: ETONOGESTREL
     Dosage: 68 MG, UNK
     Route: 059
     Dates: start: 201505, end: 20170622

REACTIONS (2)
  - Implant site pain [Unknown]
  - Menstruation irregular [Unknown]
